FAERS Safety Report 21525119 (Version 2)
Quarter: 2025Q2

REPORT INFORMATION
  Report Type: Spontaneous
  Country: PT (occurrence: PT)
  Receive Date: 20221030
  Receipt Date: 20250605
  Transmission Date: 20250717
  Serious: Yes (Other)
  Sender: AUROBINDO
  Company Number: PT-RECKITT BENCKISER HEALTHCARE INT LIMITED-RB-099567-2022

PATIENT
  Age: 20 Year
  Sex: Male

DRUGS (1)
  1. IBUPROFEN [Suspect]
     Active Substance: IBUPROFEN
     Indication: Product used for unknown indication
     Route: 065

REACTIONS (9)
  - Periorbital oedema [Unknown]
  - Anaphylactic reaction [Unknown]
  - Cough [Unknown]
  - Lip oedema [Unknown]
  - Diarrhoea [Unknown]
  - Oedema peripheral [Unknown]
  - Dyspnoea [Unknown]
  - Erythema [Unknown]
  - Pruritus [Unknown]
